FAERS Safety Report 22259186 (Version 1)
Quarter: 2023Q2

REPORT INFORMATION
  Report Type: Spontaneous
  Country: CN (occurrence: CN)
  Receive Date: 20230427
  Receipt Date: 20230427
  Transmission Date: 20230721
  Serious: Yes (Hospitalization, Other)
  Sender: FDA-Public Use
  Company Number: CN-SA-SAC20230426000234

PATIENT
  Age: 67 Year
  Sex: Female

DRUGS (1)
  1. ENOXAPARIN SODIUM [Suspect]
     Active Substance: ENOXAPARIN SODIUM
     Indication: Prophylaxis
     Dosage: 0.4 ML, QD
     Route: 058
     Dates: start: 20230412, end: 20230413

REACTIONS (6)
  - Thrombosis [Recovering/Resolving]
  - Ureteric obstruction [Recovering/Resolving]
  - Haemorrhage urinary tract [Recovering/Resolving]
  - Ureteric dilatation [Recovering/Resolving]
  - Oliguria [Recovering/Resolving]
  - Effusion [Recovering/Resolving]

NARRATIVE: CASE EVENT DATE: 20230414
